FAERS Safety Report 13194680 (Version 2)
Quarter: 2018Q2

REPORT INFORMATION
  Report Type: Report from Study
  Country: US (occurrence: US)
  Receive Date: 20170207
  Receipt Date: 20180413
  Transmission Date: 20180711
  Serious: Yes (Other)
  Sender: FDA-Public Use
  Company Number: US-MYLANLABS-2017M1007252

PATIENT
  Age: 13 Year
  Sex: Female

DRUGS (2)
  1. IBUPROFEN. [Concomitant]
     Active Substance: IBUPROFEN
     Indication: ARTHRALGIA
     Route: 065
  2. KETAMINE [Suspect]
     Active Substance: KETAMINE
     Indication: ARTHRALGIA
     Route: 048

REACTIONS (4)
  - Dizziness [Unknown]
  - Pain [Unknown]
  - Headache [Unknown]
  - Confusional state [Unknown]
